FAERS Safety Report 24569639 (Version 3)
Quarter: 2025Q2

REPORT INFORMATION
  Report Type: Spontaneous
  Country: JP (occurrence: JP)
  Receive Date: 20241031
  Receipt Date: 20250401
  Transmission Date: 20250717
  Serious: Yes (Other)
  Sender: LANTHEUS MEDICAL IMAGING
  Company Number: JP-LANTHEUS-LMI-2024-01318

PATIENT
  Age: 52 Year
  Sex: Female
  Weight: 63.9 kg

DRUGS (8)
  1. CARDIOLITE [Suspect]
     Active Substance: TECHNETIUM TC-99M SESTAMIBI
     Indication: Renal failure
     Route: 042
     Dates: start: 20241004, end: 20241004
  2. CARDIOLITE [Suspect]
     Active Substance: TECHNETIUM TC-99M SESTAMIBI
     Indication: Scan myocardial perfusion
     Route: 042
     Dates: start: 20241004, end: 20241004
  3. ADENOSINE [Suspect]
     Active Substance: ADENOSINE
     Indication: Renal failure
     Route: 042
     Dates: start: 20241004, end: 20241004
  4. ADENOSINE [Suspect]
     Active Substance: ADENOSINE
     Indication: Scan myocardial perfusion
  5. CILNIDIPINE [Suspect]
     Active Substance: CILNIDIPINE
     Indication: Hypertension
     Dosage: 12 MILLIGRAM, QD
     Route: 048
     Dates: start: 20241004
  6. ESOMEPRAZOLE MAGNESIUM [Concomitant]
     Active Substance: ESOMEPRAZOLE MAGNESIUM
     Indication: Gastrooesophageal reflux disease
     Dosage: 20 MILLIGRAM, QD
     Route: 048
     Dates: start: 20240928
  7. POTASSIUM CHLORIDE [Concomitant]
     Active Substance: POTASSIUM CHLORIDE
     Indication: Hypokalaemia
     Dosage: 0.5 GRAM, Q 8 HR
     Route: 048
     Dates: start: 20240928
  8. NIFEDIPINE [Concomitant]
     Active Substance: NIFEDIPINE
     Indication: Hypertension
     Dosage: 40 MILLIGRAM, Q 12 HR
     Route: 048
     Dates: start: 20240928

REACTIONS (1)
  - Anaphylactic shock [Recovered/Resolved]

NARRATIVE: CASE EVENT DATE: 20241004
